FAERS Safety Report 9313901 (Version 1)
Quarter: 2013Q2

REPORT INFORMATION
  Report Type: Spontaneous
  Country: US (occurrence: US)
  Receive Date: 20130529
  Receipt Date: 20130529
  Transmission Date: 20140414
  Serious: No
  Sender: FDA-Public Use
  Company Number: US-BIOGENIDEC-2013BI047638

PATIENT
  Sex: Female

DRUGS (2)
  1. TYSABRI [Suspect]
     Indication: MULTIPLE SCLEROSIS
     Route: 042
     Dates: start: 20071027, end: 20130404
  2. COPAXONE [Concomitant]

REACTIONS (2)
  - Ill-defined disorder [Unknown]
  - Coordination abnormal [Not Recovered/Not Resolved]
